FAERS Safety Report 4397025-1 (Version None)
Quarter: 2004Q3

REPORT INFORMATION
  Report Type: 
  Country: None (occurrence: None)
  Receive Date: 20040714
  Receipt Date: 20040707
  Transmission Date: 20050211
  Serious: Yes (Life-Threatening, Hospitalization, Other)
  Sender: FDA-Public Use
  Company Number: PHBS2004DE09171

PATIENT
  Age: 26 Year
  Sex: Male

DRUGS (4)
  1. CYCLOSPORINE [Suspect]
     Indication: SYSTEMIC LUPUS ERYTHEMATOSUS
     Dosage: 3 MG/KG, BID
     Route: 065
  2. PREDNISOLONE [Suspect]
     Indication: SYSTEMIC LUPUS ERYTHEMATOSUS
     Route: 065
  3. PREDNISOLONE [Suspect]
     Dosage: 1 MG/KG, BID
  4. CYCLOPHOSPHAMIDE [Suspect]
     Indication: SYSTEMIC LUPUS ERYTHEMATOSUS

REACTIONS (21)
  - ABSCESS SOFT TISSUE [None]
  - ANAEMIA [None]
  - ARTHRALGIA [None]
  - BLOOD CREATININE INCREASED [None]
  - CLOSTRIDIUM COLITIS [None]
  - DISEASE PROGRESSION [None]
  - EMPYEMA [None]
  - LUPUS NEPHRITIS [None]
  - MYALGIA [None]
  - NEPHROPATHY TOXIC [None]
  - OSTEOMYELITIS [None]
  - OSTEONECROSIS [None]
  - PLEURAL RUB [None]
  - PNEUMONIA [None]
  - PROTEINURIA [None]
  - RASH [None]
  - RENAL FAILURE ACUTE [None]
  - STAPHYLOCOCCAL ABSCESS [None]
  - STAPHYLOCOCCAL SEPSIS [None]
  - TUBULOINTERSTITIAL NEPHRITIS [None]
  - WEIGHT INCREASED [None]
